FAERS Safety Report 8288664-6 (Version None)
Quarter: 2012Q2

REPORT INFORMATION
  Report Type: 
  Country: None (occurrence: None)
  Receive Date: 20120417
  Receipt Date: 20120412
  Transmission Date: 20120825
  Serious: Yes (Hospitalization, Other)
  Sender: FDA-Public Use
  Company Number: GB-AMGEN-GBRSP2012023091

PATIENT
  Age: 69 Year
  Sex: Female
  Weight: 51.7 kg

DRUGS (9)
  1. MOMETASONE FUROATE [Concomitant]
  2. PROLIA [Suspect]
     Indication: OSTEOPOROSIS
     Dosage: 60 MG, UNK
     Route: 058
     Dates: start: 20110325, end: 20120314
  3. ESTRADIOL [Concomitant]
  4. CETIRIZINE [Concomitant]
  5. TRAMADOL HCL [Concomitant]
  6. ACETAMINOPHEN [Concomitant]
  7. CALCIUM + VITAMIN D                /01483701/ [Concomitant]
  8. LANSOPRAZOLE [Concomitant]
  9. ETORICOXIB [Concomitant]

REACTIONS (2)
  - FEMUR FRACTURE [None]
  - BLOOD PARATHYROID HORMONE INCREASED [None]
